FAERS Safety Report 9585474 (Version 1)
Quarter: 2013Q4

REPORT INFORMATION
  Report Type: Spontaneous
  Country: GB (occurrence: GB)
  Receive Date: 20131003
  Receipt Date: 20131003
  Transmission Date: 20140711
  Serious: Yes (Other)
  Sender: FDA-Public Use
  Company Number: PHHY2013GB107282

PATIENT
  Age: 45 Year
  Sex: Male
  Weight: 69.85 kg

DRUGS (1)
  1. METHOTREXATE [Suspect]
     Indication: PSORIASIS
     Dosage: 12.5 MG, QW
     Route: 048
     Dates: start: 20130201, end: 20130901

REACTIONS (5)
  - Dizziness [Unknown]
  - Personality change [Unknown]
  - Suicidal ideation [Recovered/Resolved]
  - Depressed mood [Recovered/Resolved]
  - Fatigue [Unknown]
